FAERS Safety Report 7071209-6 (Version None)
Quarter: 2010Q4

REPORT INFORMATION
  Report Type: 
  Country: None (occurrence: None)
  Receive Date: 20101029
  Receipt Date: 20101015
  Transmission Date: 20110411
  Serious: Yes (Other)
  Sender: FDA-Public Use
  Company Number: US-GENZYME-FLUD-1000327

PATIENT
  Sex: Male

DRUGS (2)
  1. FLUDARA [Suspect]
     Indication: WALDENSTROM'S MACROGLOBULINAEMIA
     Dosage: UNK
     Route: 065
     Dates: start: 20040801, end: 20050201
  2. RITUXAN [Suspect]
     Indication: WALDENSTROM'S MACROGLOBULINAEMIA
     Dosage: UNK
     Route: 065
     Dates: start: 20040801, end: 20050201

REACTIONS (2)
  - ACUTE MYELOID LEUKAEMIA [None]
  - REFRACTORY ANAEMIA WITH AN EXCESS OF BLASTS [None]
